FAERS Safety Report 5055231-7 (Version None)
Quarter: 2006Q3

REPORT INFORMATION
  Report Type: 
  Country: None (occurrence: None)
  Receive Date: 20060714
  Receipt Date: 20060630
  Transmission Date: 20061208
  Serious: Yes (Life-Threatening, Other)
  Sender: FDA-Public Use
  Company Number: 2006P1000364

PATIENT
  Age: 72 Year
  Sex: Male
  Weight: 95 kg

DRUGS (4)
  1. RETEPLASE (RETEPLASE ) [Suspect]
     Indication: ACUTE MYOCARDIAL INFARCTION
     Dosage: IV
     Route: 042
     Dates: start: 20060623
  2. REOPRO [Suspect]
     Indication: ACUTE MYOCARDIAL INFARCTION
     Dosage: IV
     Route: 042
     Dates: start: 20060623
  3. CLOPIDOGREL [Concomitant]
  4. ASPIRIN [Concomitant]

REACTIONS (5)
  - ACCELERATED IDIOVENTRICULAR RHYTHM [None]
  - BRADYCARDIA [None]
  - CONDITION AGGRAVATED [None]
  - HYPERTENSION [None]
  - VENTRICULAR FIBRILLATION [None]
